FAERS Safety Report 12649786 (Version 1)
Quarter: 2016Q3

REPORT INFORMATION
  Report Type: Spontaneous
  Country: CN (occurrence: CN)
  Receive Date: 20160812
  Receipt Date: 20160812
  Transmission Date: 20161109
  Serious: Yes (Hospitalization)
  Sender: FDA-Public Use
  Company Number: CN-ASTRAZENECA-2016SE86599

PATIENT
  Age: 51 Year
  Sex: Female

DRUGS (6)
  1. MEPEM [Suspect]
     Active Substance: MEROPENEM
     Indication: INFECTION
     Dosage: EVERY 8 HOURS
     Route: 042
     Dates: start: 20160212, end: 20160223
  2. VANCOMYCIN [Suspect]
     Active Substance: VANCOMYCIN
     Indication: INFECTION
     Route: 041
     Dates: start: 20160212, end: 20160223
  3. XINING [Suspect]
     Active Substance: CETIRIZINE HYDROCHLORIDE
     Indication: RASH
     Route: 048
     Dates: start: 20160212, end: 20160222
  4. LORATADINE. [Suspect]
     Active Substance: LORATADINE
     Indication: RASH
     Route: 048
     Dates: start: 20160212, end: 20160222
  5. SODIUM CHLORIDE. [Concomitant]
     Active Substance: SODIUM CHLORIDE
  6. LEINING [Concomitant]
     Route: 048
     Dates: start: 20160212

REACTIONS (6)
  - Alanine aminotransferase increased [Recovering/Resolving]
  - Hepatotoxicity [None]
  - Hepatic function abnormal [Recovering/Resolving]
  - Aspartate aminotransferase increased [Recovering/Resolving]
  - Ocular icterus [None]
  - Blood bilirubin increased [Recovering/Resolving]

NARRATIVE: CASE EVENT DATE: 20160217
